FAERS Safety Report 17692291 (Version 1)
Quarter: 2020Q2

REPORT INFORMATION
  Report Type: Spontaneous
  Country: US (occurrence: US)
  Receive Date: 20200421
  Receipt Date: 20200421
  Transmission Date: 20200714
  Serious: Yes (Hospitalization)
  Sender: FDA-Public Use
  Company Number: None

PATIENT
  Sex: Female

DRUGS (22)
  1. VITAMIN D [Concomitant]
     Active Substance: VITAMIN D NOS
  2. LEVOTHYROXIN [Concomitant]
     Active Substance: LEVOTHYROXINE
  3. LEXAPRO [Concomitant]
     Active Substance: ESCITALOPRAM OXALATE
  4. CALCIUM [Concomitant]
     Active Substance: CALCIUM
  5. CLARITIN [Concomitant]
     Active Substance: LORATADINE
  6. LATANOPROST. [Concomitant]
     Active Substance: LATANOPROST
  7. VALTREX [Concomitant]
     Active Substance: VALACYCLOVIR HYDROCHLORIDE
  8. OTREXUP [Suspect]
     Active Substance: METHOTREXATE
     Indication: PSORIATIC ARTHROPATHY
     Dosage: ?          OTHER FREQUENCY:ONCE WEEKLY;?
     Route: 058
     Dates: start: 20200127
  9. FERROUS [Concomitant]
     Active Substance: IRON
  10. LAMICTAL [Concomitant]
     Active Substance: LAMOTRIGINE
  11. TYLENOL [Concomitant]
     Active Substance: ACETAMINOPHEN
  12. GARLIC. [Concomitant]
     Active Substance: GARLIC
  13. PROPRANOLOL [Concomitant]
     Active Substance: PROPRANOLOL HYDROCHLORIDE
  14. SULFASALAZINE DELAYED-RELEASE [Concomitant]
     Active Substance: SULFASALAZINE
  15. XARELTO [Concomitant]
     Active Substance: RIVAROXABAN
  16. NOVOLOG [Concomitant]
     Active Substance: INSULIN ASPART
  17. PREDNISONE. [Concomitant]
     Active Substance: PREDNISONE
  18. TRESIBA FLEX [Concomitant]
  19. VITMAIN D3 [Concomitant]
  20. COD LIVER [Concomitant]
     Active Substance: COD LIVER OIL
  21. FOLIC ACID. [Concomitant]
     Active Substance: FOLIC ACID
  22. GABAPENTIN. [Concomitant]
     Active Substance: GABAPENTIN

REACTIONS (1)
  - Coronavirus test positive [None]
